FAERS Safety Report 23381093 (Version 2)
Quarter: 2024Q3

REPORT INFORMATION
  Report Type: Spontaneous
  Country: FR (occurrence: FR)
  Receive Date: 20240109
  Receipt Date: 20240722
  Transmission Date: 20241016
  Serious: Yes (Death, Hospitalization, Other)
  Sender: AUROBINDO
  Company Number: FR-ROCHE-3475783

PATIENT
  Age: 71 Year
  Sex: Female
  Weight: 66 kg

DRUGS (6)
  1. DOXORUBICIN [Suspect]
     Active Substance: DOXORUBICIN
     Indication: Diffuse large B-cell lymphoma
     Dosage: 50 MILLIGRAM/SQ. METER, EVERY 3 WEEKS (ON 04/DEC/2023, MOST RECENT DOSE PRIOR TO AE/SAE WAS TAKEN)
     Route: 042
     Dates: start: 20231204
  2. PREDNISONE [Suspect]
     Active Substance: PREDNISONE
     Indication: Diffuse large B-cell lymphoma
     Dosage: 80 MILLIGRAM 3WEEK
     Route: 048
     Dates: start: 20231205
  3. CYCLOPHOSPHAMIDE [Suspect]
     Active Substance: CYCLOPHOSPHAMIDE
     Indication: Diffuse large B-cell lymphoma
     Dosage: 750 MILLIGRAM/SQ. METER, EVERY 3 WEEKS (ON 04/DEC/2023, MOST RECENT DOSE PRIOR TO AE/SAE WAS TAKEN)
     Route: 042
     Dates: start: 20231204
  4. METHYLPREDNISOLONE [Suspect]
     Active Substance: METHYLPREDNISOLONE
     Indication: Diffuse large B-cell lymphoma
     Dosage: 80 MILLIGRAM, EVERY 3 WEEKS (ON 04/DEC/2023, MOST RECENT DOSE (80) PRIOR TO AE/SAE WAS TAKEN)
     Route: 042
     Dates: start: 20231204
  5. RITUXIMAB [Suspect]
     Active Substance: RITUXIMAB
     Indication: Diffuse large B-cell lymphoma
     Dosage: 375 MILLIGRAM/SQ. METER, EVERY 3 WEEKS (ON 04/DEC/2023,  MOST RECENT DOSE PRIOR TO AE/SAE WAS TAKEN.
     Route: 042
     Dates: start: 20231204
  6. VINCRISTINE [Suspect]
     Active Substance: VINCRISTINE
     Indication: Diffuse large B-cell lymphoma
     Dosage: 2 MILLIGRAM, EVERY 3 WEEKS (ON 04/DEC/2023, MOST RECENT DOSE PRIOR TO AE/SAE WAS TAKEN)
     Route: 042
     Dates: start: 20231204

REACTIONS (1)
  - Sepsis [Fatal]

NARRATIVE: CASE EVENT DATE: 20231213
